FAERS Safety Report 5299347-9 (Version None)
Quarter: 2007Q1

REPORT INFORMATION
  Report Type: 
  Country: None (occurrence: None)
  Receive Date: 20070201
  Receipt Date: 20061030
  Transmission Date: 20070707
  Serious: No
  Sender: FDA-Public Use
  Company Number: 2006PV024102

PATIENT
  Age: 71 Year
  Sex: Female
  Weight: 76.2043 kg

DRUGS (7)
  1. BYETTA [Suspect]
     Indication: DIABETES MELLITUS NON-INSULIN-DEPENDENT
     Dosage: SEE IMAGE
     Route: 058
     Dates: start: 20060801, end: 20060901
  2. BYETTA [Suspect]
     Indication: DIABETES MELLITUS NON-INSULIN-DEPENDENT
     Dosage: SEE IMAGE
     Route: 058
     Dates: start: 20060901, end: 20061027
  3. AMARYL [Concomitant]
  4. LANTUS [Concomitant]
  5. STARLIX [Concomitant]
  6. BLOOD PRESSURE MEDICATION [Concomitant]
  7. OSTEOPOROSIS MEDICATION [Concomitant]

REACTIONS (6)
  - ASTHENIA [None]
  - CONFUSIONAL STATE [None]
  - DECREASED APPETITE [None]
  - FATIGUE [None]
  - HALLUCINATION, VISUAL [None]
  - WEIGHT DECREASED [None]
